FAERS Safety Report 25414903 (Version 2)
Quarter: 2025Q3

REPORT INFORMATION
  Report Type: Spontaneous
  Country: JP (occurrence: JP)
  Receive Date: 20250609
  Receipt Date: 20250715
  Transmission Date: 20251021
  Serious: Yes (Other)
  Sender: ASTELLAS
  Company Number: JP-ASTELLAS-2025-AER-030398

PATIENT
  Age: 9 Decade
  Sex: Male

DRUGS (4)
  1. XOSPATA [Suspect]
     Active Substance: GILTERITINIB
     Indication: Acute myeloid leukaemia recurrent
     Route: 048
  2. XOSPATA [Suspect]
     Active Substance: GILTERITINIB
     Route: 048
  3. XOSPATA [Suspect]
     Active Substance: GILTERITINIB
     Route: 048
  4. XOSPATA [Suspect]
     Active Substance: GILTERITINIB
     Route: 048

REACTIONS (2)
  - Neutrophil count decreased [Recovered/Resolved]
  - Taste disorder [Not Recovered/Not Resolved]
